FAERS Safety Report 5680409-9 (Version None)
Quarter: 2008Q1

REPORT INFORMATION
  Report Type: 
  Country: None (occurrence: None)
  Receive Date: 20080326
  Receipt Date: 20080317
  Transmission Date: 20080703
  Serious: Yes (Other)
  Sender: FDA-Public Use
  Company Number: GB-BRISTOL-MYERS SQUIBB COMPANY-14122121

PATIENT
  Age: 76 Year
  Sex: Male

DRUGS (5)
  1. CARBIDOPA + LEVODOPA [Suspect]
     Indication: PARKINSONISM
     Dosage: 1 DOSAGE FORM = 1 TAB. DOSE REDUCED TO 62.5 MG TWICE DAILY.
     Route: 048
     Dates: start: 20070416, end: 20080220
  2. ACETAMINOPHEN [Concomitant]
  3. GAVISCON [Concomitant]
  4. RENNIE [Concomitant]
  5. CITALOPRAM [Concomitant]

REACTIONS (1)
  - OBSESSIVE-COMPULSIVE DISORDER [None]
